FAERS Safety Report 9031272 (Version 4)
Quarter: 2013Q1

REPORT INFORMATION
  Report Type: Report from Study
  Country: DE (occurrence: DE)
  Receive Date: 20130123
  Receipt Date: 20130315
  Transmission Date: 20140127
  Serious: Yes (Death, Life-Threatening)
  Sender: FDA-Public Use
  Company Number: DE-PFIZER INC-2013023929

PATIENT
  Age: 70 Year
  Sex: 0

DRUGS (1)
  1. TEMSIROLIMUS [Suspect]
     Indication: CENTRAL NERVOUS SYSTEM LYMPHOMA
     Dosage: 75 MG, 1X/DAY
     Route: 042
     Dates: start: 20120601, end: 20120601

REACTIONS (4)
  - Cerebral haemorrhage [Fatal]
  - Angina pectoris [Unknown]
  - General physical health deterioration [Not Recovered/Not Resolved]
  - Depressed level of consciousness [Not Recovered/Not Resolved]
